FAERS Safety Report 10915376 (Version 1)
Quarter: 2015Q1

REPORT INFORMATION
  Report Type: Spontaneous
  Country: US (occurrence: None)
  Receive Date: 20150311
  Receipt Date: 20150311
  Transmission Date: 20150721
  Serious: No
  Sender: FDA-Public Use
  Company Number: None

PATIENT
  Age: 51 Year
  Sex: Female

DRUGS (1)
  1. LUPRON DEPOT [Suspect]
     Active Substance: LEUPROLIDE ACETATE
     Dosage: 3.75 INJECTABLE
     Route: 030

REACTIONS (2)
  - Treatment noncompliance [None]
  - Haemorrhage [None]

NARRATIVE: CASE EVENT DATE: 20150309
